FAERS Safety Report 14109962 (Version 1)
Quarter: 2017Q4

REPORT INFORMATION
  Report Type: Spontaneous
  Country: US (occurrence: US)
  Receive Date: 20171020
  Receipt Date: 20171020
  Transmission Date: 20180321
  Serious: No
  Sender: FDA-Public Use
  Company Number: US-TEVA-782089ACC

PATIENT
  Sex: Male

DRUGS (1)
  1. MICONAZOLE. [Suspect]
     Active Substance: MICONAZOLE
     Indication: FUNGAL INFECTION
     Dosage: PRODUCT TAKEN BY PARTNER

REACTIONS (2)
  - Fungal infection [Unknown]
  - Exposure via partner [Unknown]
